FAERS Safety Report 16767162 (Version 2)
Quarter: 2019Q3

REPORT INFORMATION
  Report Type: Spontaneous
  Country: US (occurrence: US)
  Receive Date: 20190903
  Receipt Date: 20190927
  Transmission Date: 20191005
  Serious: No
  Sender: FDA-Public Use
  Company Number: US-PFIZER INC-2019376895

PATIENT
  Age: 92 Year
  Sex: Male

DRUGS (20)
  1. TOPIRAMATE. [Suspect]
     Active Substance: TOPIRAMATE
     Indication: HEADACHE
     Dosage: 50 MG, 2X/DAY
     Dates: start: 20190815
  2. TOPIRAMATE. [Suspect]
     Active Substance: TOPIRAMATE
     Indication: DIZZINESS
  3. LYRICA [Suspect]
     Active Substance: PREGABALIN
     Indication: HEADACHE
     Dosage: 10 MG, 2X/DAY
     Dates: start: 20190130
  4. GABAPENTIN. [Suspect]
     Active Substance: GABAPENTIN
     Indication: HEADACHE
     Dosage: 100 MG, 2X/DAY (2 HS BEDTIME)
     Dates: start: 20190822
  5. ELIQUIS [Concomitant]
     Active Substance: APIXABAN
     Dosage: UNK, (ELIQUIS 5MG MORE 2.5 MG NOTE)
  6. DOCUSATE [Concomitant]
     Active Substance: DOCUSATE
     Dosage: 240 MG, 1X/DAY
  7. TYLENOL [Concomitant]
     Active Substance: ACETAMINOPHEN
     Dosage: 450 MG, 2X/DAY
  8. SOTALOL. [Concomitant]
     Active Substance: SOTALOL
     Dosage: 80 MG, UNK (1TAB IN MORNING- 1.5 NIGHT)
  9. XYZAL [Concomitant]
     Active Substance: LEVOCETIRIZINE DIHYDROCHLORIDE
     Dosage: 5 MG, 1X/DAY
  10. LYRICA [Suspect]
     Active Substance: PREGABALIN
     Indication: DIZZINESS
     Dosage: UNK, 1X/DAY (FOR ABOUT A WEEK OR 10 DAYS)
  11. LYRICA [Suspect]
     Active Substance: PREGABALIN
     Indication: BALANCE DISORDER
     Dosage: UNK (3 TIMES A WEEK)
  12. TILUR [Concomitant]
     Active Substance: ACEMETACIN
     Dosage: UNK UNK, 3X/DAY
  13. GABAPENTIN. [Suspect]
     Active Substance: GABAPENTIN
     Indication: DIZZINESS
  14. FINASTERIDE. [Concomitant]
     Active Substance: FINASTERIDE
     Dosage: 5 MG, 1X/DAY
  15. ROSUVASTATIN. [Concomitant]
     Active Substance: ROSUVASTATIN
     Dosage: 5 MG, UNK (M-W )
  16. TORSEMIDE. [Concomitant]
     Active Substance: TORSEMIDE
     Dosage: 10 MG, AS NEEDED
  17. GABAPENTIN. [Suspect]
     Active Substance: GABAPENTIN
     Indication: BALANCE DISORDER
  18. TOPIRAMATE. [Suspect]
     Active Substance: TOPIRAMATE
     Indication: BALANCE DISORDER
  19. FLOMAX [Concomitant]
     Active Substance: TAMSULOSIN HYDROCHLORIDE
     Dosage: 0.4 MG, 1X/DAY
  20. THYROXINE [Concomitant]
     Active Substance: LEVOTHYROXINE
     Dosage: 88 MG, 1X/DAY

REACTIONS (5)
  - Hypoacusis [Not Recovered/Not Resolved]
  - Intentional product misuse [Not Recovered/Not Resolved]
  - Therapeutic response unexpected [Not Recovered/Not Resolved]
  - Pre-existing condition improved [Not Recovered/Not Resolved]
  - Weight increased [Not Recovered/Not Resolved]
